FAERS Safety Report 25047249 (Version 1)
Quarter: 2025Q1

REPORT INFORMATION
  Report Type: Spontaneous
  Country: FR (occurrence: FR)
  Receive Date: 20250306
  Receipt Date: 20250306
  Transmission Date: 20250408
  Serious: Yes (Other)
  Sender: MYLAN
  Company Number: None

PATIENT
  Age: 31 Year
  Sex: Male

DRUGS (4)
  1. ALPRAZOLAM [Suspect]
     Active Substance: ALPRAZOLAM
     Indication: Product used for unknown indication
     Dosage: QD,(3 TO 4 TABS/D)
     Dates: start: 202404
  2. ALPRAZOLAM [Suspect]
     Active Substance: ALPRAZOLAM
     Dosage: QD,(3 TO 4 TABS/D)
     Route: 048
     Dates: start: 202404
  3. ALPRAZOLAM [Suspect]
     Active Substance: ALPRAZOLAM
     Dosage: QD,(3 TO 4 TABS/D)
     Route: 048
     Dates: start: 202404
  4. ALPRAZOLAM [Suspect]
     Active Substance: ALPRAZOLAM
     Dosage: QD,(3 TO 4 TABS/D)
     Dates: start: 202404

REACTIONS (1)
  - Drug use disorder [Not Recovered/Not Resolved]
